FAERS Safety Report 4667655-8 (Version None)
Quarter: 2005Q2

REPORT INFORMATION
  Report Type: 
  Country: None (occurrence: None)
  Receive Date: 20050519
  Receipt Date: 20050519
  Transmission Date: 20051028
  Serious: Yes (Other)
  Sender: FDA-Public Use
  Company Number: None

PATIENT
  Age: 32 Year
  Sex: Male
  Weight: 86.1834 kg

DRUGS (2)
  1. LEXAPRO [Suspect]
     Indication: BIPOLAR DISORDER
     Dosage: 10 MG DAILY ORAL
     Route: 048
     Dates: start: 20040601, end: 20040629
  2. LEXAPRO [Suspect]
     Indication: DEPRESSION
     Dosage: 10 MG DAILY ORAL
     Route: 048
     Dates: start: 20040601, end: 20040629

REACTIONS (4)
  - AGGRESSION [None]
  - ALCOHOL USE [None]
  - CONDITION AGGRAVATED [None]
  - PSYCHOTIC DISORDER [None]
